FAERS Safety Report 18383927 (Version 1)
Quarter: 2020Q4

REPORT INFORMATION
  Report Type: Spontaneous
  Country: DE (occurrence: DE)
  Receive Date: 20201014
  Receipt Date: 20201014
  Transmission Date: 20210114
  Serious: Yes (Other)
  Sender: FDA-Public Use
  Company Number: DE-JNJFOC-20201019791

PATIENT
  Age: 70 Year
  Sex: Female
  Weight: 88 kg

DRUGS (1)
  1. RIVAROXABAN [Suspect]
     Active Substance: RIVAROXABAN
     Indication: ATRIAL FIBRILLATION
     Dosage: 1 TBL.
     Route: 048
     Dates: start: 20200126, end: 20200220

REACTIONS (1)
  - Haemolysis [Recovered/Resolved]

NARRATIVE: CASE EVENT DATE: 2020
